FAERS Safety Report 4282205-6 (Version None)
Quarter: 2004Q1

REPORT INFORMATION
  Report Type: 
  Country: None (occurrence: None)
  Receive Date: 20040130
  Receipt Date: 20030327
  Transmission Date: 20041129
  Serious: Yes (Hospitalization)
  Sender: FDA-Public Use
  Company Number: DK-GLAXOSMITHKLINE-B0296208A

PATIENT
  Age: 27 Year
  Sex: Male

DRUGS (3)
  1. LAMICTAL [Suspect]
     Dosage: 50MG PER DAY
     Dates: end: 20030326
  2. VENLAFAXINE HCL [Suspect]
  3. PENICILLIN [Suspect]

REACTIONS (10)
  - BACK PAIN [None]
  - BODY TEMPERATURE INCREASED [None]
  - DISTURBANCE IN ATTENTION [None]
  - HALLUCINATION [None]
  - HEADACHE [None]
  - HEPATIC ENZYME INCREASED [None]
  - HYPOACUSIS [None]
  - INFLAMMATION [None]
  - RASH [None]
  - VISION BLURRED [None]
